FAERS Safety Report 14863544 (Version 1)
Quarter: 2018Q2

REPORT INFORMATION
  Report Type: Spontaneous
  Country: US (occurrence: US)
  Receive Date: 20180508
  Receipt Date: 20180508
  Transmission Date: 20180711
  Serious: No
  Sender: FDA-Public Use
  Company Number: US-ALKERMES INC.-ALK-2017-002893

PATIENT
  Sex: Female

DRUGS (6)
  1. LAMICTAL [Concomitant]
     Active Substance: LAMOTRIGINE
     Dosage: UNK
     Dates: start: 2017
  2. VIVITROL [Suspect]
     Active Substance: NALTREXONE
     Indication: DRUG DEPENDENCE
     Dosage: 380 MG, QMO
     Route: 030
  3. LAMICTAL [Concomitant]
     Active Substance: LAMOTRIGINE
     Indication: DEPRESSION
     Dosage: UNK
     Dates: end: 2017
  4. WELLBUTRIN [Concomitant]
     Active Substance: BUPROPION HYDROCHLORIDE
     Indication: DEPRESSION
     Dosage: UNK
  5. PROZAC [Concomitant]
     Active Substance: FLUOXETINE HYDROCHLORIDE
     Indication: DEPRESSION
     Dosage: UNK
  6. EFFEXOR [Concomitant]
     Active Substance: VENLAFAXINE HYDROCHLORIDE
     Indication: DEPRESSION
     Dosage: UNK

REACTIONS (6)
  - Suicidal ideation [Unknown]
  - Tremor [Recovering/Resolving]
  - Abnormal dreams [Unknown]
  - Drug prescribing error [Recovered/Resolved]
  - Irritability [Unknown]
  - Apathy [Unknown]
